FAERS Safety Report 4988302-1 (Version None)
Quarter: 2006Q2

REPORT INFORMATION
  Report Type: 
  Country: None (occurrence: None)
  Receive Date: 20060425
  Receipt Date: 20060412
  Transmission Date: 20061013
  Serious: Yes (Hospitalization, Other)
  Sender: FDA-Public Use
  Company Number: 2006040975

PATIENT
  Age: 47 Year
  Sex: Female
  Weight: 51.1 kg

DRUGS (3)
  1. HALCION [Suspect]
     Indication: ILL-DEFINED DISORDER
     Dosage: ORAL
     Route: 048
  2. IMATINIB MESILATE (IMATINIB MESILATE) [Suspect]
     Indication: CHRONIC MYELOID LEUKAEMIA
     Dosage: 200 MG (200 MG, QD), ORAL
     Route: 048
     Dates: start: 20020101
  3. BROTIZOLAM [Concomitant]

REACTIONS (8)
  - BLOOD CREATINE PHOSPHOKINASE INCREASED [None]
  - DEPRESSED LEVEL OF CONSCIOUSNESS [None]
  - MYALGIA [None]
  - NAUSEA [None]
  - OEDEMA [None]
  - OVERDOSE [None]
  - SUICIDE ATTEMPT [None]
  - UTERINE CANCER [None]
